FAERS Safety Report 26141012 (Version 1)
Quarter: 2025Q4

REPORT INFORMATION
  Report Type: Spontaneous
  Country: US (occurrence: US)
  Receive Date: 20251210
  Receipt Date: 20251210
  Transmission Date: 20260118
  Serious: Yes (Life-Threatening, Other)
  Sender: PFIZER
  Company Number: US-PFIZER INC-PV202500143907

PATIENT
  Age: 22 Year
  Sex: Male

DRUGS (12)
  1. LINEZOLID [Suspect]
     Active Substance: LINEZOLID
     Indication: Pneumothorax
     Dosage: UNK
     Dates: start: 2024
  2. LINEZOLID [Suspect]
     Active Substance: LINEZOLID
     Indication: Mycobacterium abscessus infection
  3. MEROPENEM [Suspect]
     Active Substance: MEROPENEM
     Indication: Pneumothorax
     Dosage: UNK
     Dates: start: 2024
  4. MEROPENEM [Suspect]
     Active Substance: MEROPENEM
     Indication: Mycobacterium abscessus infection
  5. PIPERACILLIN SODIUM\TAZOBACTAM SODIUM [Suspect]
     Active Substance: PIPERACILLIN SODIUM\TAZOBACTAM SODIUM
     Indication: Pneumothorax
     Dosage: UNK
     Dates: start: 2024
  6. PIPERACILLIN SODIUM\TAZOBACTAM SODIUM [Suspect]
     Active Substance: PIPERACILLIN SODIUM\TAZOBACTAM SODIUM
     Indication: Mycobacterium abscessus infection
  7. AZITHROMYCIN [Concomitant]
     Active Substance: AZITHROMYCIN
     Indication: Pneumothorax
     Dosage: UNK
     Dates: start: 2024
  8. AZITHROMYCIN [Concomitant]
     Active Substance: AZITHROMYCIN
     Indication: Mycobacterium abscessus infection
  9. AMIKACIN [Concomitant]
     Active Substance: AMIKACIN
     Indication: Pneumothorax
     Dosage: UNK
     Dates: start: 2024
  10. AMIKACIN [Concomitant]
     Active Substance: AMIKACIN
     Indication: Mycobacterium abscessus infection
  11. ERAVACYCLINE [Concomitant]
     Active Substance: ERAVACYCLINE
     Indication: Pneumothorax
     Dosage: UNK
     Dates: start: 2024
  12. ERAVACYCLINE [Concomitant]
     Active Substance: ERAVACYCLINE
     Indication: Mycobacterium abscessus infection

REACTIONS (2)
  - Drug ineffective for unapproved indication [Unknown]
  - Off label use [Unknown]

NARRATIVE: CASE EVENT DATE: 20240101
